FAERS Safety Report 15427740 (Version 1)
Quarter: 2018Q3

REPORT INFORMATION
  Report Type: Report from Study
  Country: RO (occurrence: RO)
  Receive Date: 20180925
  Receipt Date: 20180925
  Transmission Date: 20181010
  Serious: Yes (Hospitalization)
  Sender: FDA-Public Use
  Company Number: RO-ROCHE-2127444

PATIENT
  Sex: Female
  Weight: 73 kg

DRUGS (1)
  1. ZELBORAF [Suspect]
     Active Substance: VEMURAFENIB
     Indication: BRAIN NEOPLASM
     Dosage: 4 PILLS IN THE MORNING, 4 PILLS IN THE EVENING (TOTAL 8 PILLS DAILY)
     Route: 048
     Dates: start: 20180504

REACTIONS (5)
  - Intentional product use issue [Unknown]
  - Accidental overdose [Unknown]
  - Off label use [Unknown]
  - Photosensitivity reaction [Unknown]
  - Malaise [Unknown]
